FAERS Safety Report 12598713 (Version 1)
Quarter: 2016Q3

REPORT INFORMATION
  Report Type: Spontaneous
  Country: US (occurrence: US)
  Receive Date: 20160727
  Receipt Date: 20160727
  Transmission Date: 20161109
  Serious: No
  Sender: FDA-Public Use
  Company Number: US-MYLANLABS-2016M1016011

PATIENT
  Sex: Female

DRUGS (1)
  1. MIRTAZAPINE TABLETS, USP [Suspect]
     Active Substance: MIRTAZAPINE
     Dosage: UNK
     Dates: start: 20160410, end: 20160411

REACTIONS (5)
  - Somnolence [Recovering/Resolving]
  - Dizziness [Recovering/Resolving]
  - Occupational exposure to product [Recovered/Resolved]
  - Malaise [Recovering/Resolving]
  - Headache [Recovering/Resolving]

NARRATIVE: CASE EVENT DATE: 20160410
